FAERS Safety Report 24744312 (Version 1)
Quarter: 2024Q4

REPORT INFORMATION
  Report Type: Spontaneous
  Country: CA (occurrence: CA)
  Receive Date: 20241217
  Receipt Date: 20241217
  Transmission Date: 20250115
  Serious: Yes (Other)
  Sender: APOTEX
  Company Number: CA-APOTEX-2024AP019567

PATIENT
  Age: 20 Year
  Sex: Male

DRUGS (29)
  1. ACETAMINOPHEN [Suspect]
     Active Substance: ACETAMINOPHEN
     Indication: Premedication
     Dosage: 505 MILLIGRAM
     Route: 048
     Dates: start: 20221214, end: 20221214
  2. DIPHENHYDRAMINE [Suspect]
     Active Substance: DIPHENHYDRAMINE
     Indication: Premedication
     Dosage: 50 MILLIGRAM
     Route: 048
     Dates: start: 20221214, end: 20221214
  3. RITUXIMAB [Suspect]
     Active Substance: RITUXIMAB
     Indication: Granulomatosis with polyangiitis
     Dosage: 825 MILLIGRAM, EVERY 4 WEEKS
     Route: 042
     Dates: start: 20201028
  4. RITUXIMAB [Suspect]
     Active Substance: RITUXIMAB
     Dosage: 825 MILLIGRAM, EVERY 4 WEEKS
     Route: 042
     Dates: start: 20201028
  5. RITUXIMAB [Suspect]
     Active Substance: RITUXIMAB
     Dosage: 825 MILLIGRAM, EVERY 4 WEEKS
     Route: 042
     Dates: start: 20201105
  6. RITUXIMAB [Suspect]
     Active Substance: RITUXIMAB
     Dosage: 825 MILLIGRAM, EVERY 4 WEEKS
     Route: 042
     Dates: start: 20201105
  7. RITUXIMAB [Suspect]
     Active Substance: RITUXIMAB
     Dosage: 825 MILLIGRAM, EVERY 4 WEEKS
     Route: 042
     Dates: start: 20201105
  8. RITUXIMAB [Suspect]
     Active Substance: RITUXIMAB
     Dosage: 825 MILLIGRAM, EVERY 4 WEEKS
     Route: 042
     Dates: start: 20201111
  9. RITUXIMAB [Suspect]
     Active Substance: RITUXIMAB
     Dosage: 825 MILLIGRAM, EVERY 4 WEEKS
     Route: 042
     Dates: start: 20201111
  10. RITUXIMAB [Suspect]
     Active Substance: RITUXIMAB
     Dosage: 825 MILLIGRAM, EVERY 4 WEEKS
     Route: 042
     Dates: start: 20201118
  11. RITUXIMAB [Suspect]
     Active Substance: RITUXIMAB
     Dosage: 825 MILLIGRAM, EVERY 4 WEEKS
     Route: 042
     Dates: start: 20201118
  12. RITUXIMAB [Suspect]
     Active Substance: RITUXIMAB
     Dosage: 500 MILLIGRAM, EVERY 6 MONTHS
     Route: 042
     Dates: start: 20211208
  13. RITUXIMAB [Suspect]
     Active Substance: RITUXIMAB
     Dosage: 500 MILLIGRAM, EVERY 6 MONTHS
     Route: 042
     Dates: start: 20220608
  14. RITUXIMAB [Suspect]
     Active Substance: RITUXIMAB
     Dosage: 500 MILLIGRAM, EVERY 6 MONTHS
     Route: 042
     Dates: start: 20221214
  15. RITUXIMAB [Suspect]
     Active Substance: RITUXIMAB
     Dosage: 500 MILLIGRAM (SUBSEQUENT DAY 1)
     Route: 042
     Dates: start: 20240111
  16. BENADRYL [Concomitant]
     Active Substance: DIPHENHYDRAMINE HYDROCHLORIDE
     Indication: Premedication
     Dosage: 50 MILLIGRAM
     Route: 048
     Dates: start: 20201105
  17. AMLODIPINE [Concomitant]
     Active Substance: AMLODIPINE BESYLATE
     Indication: Product used for unknown indication
     Dosage: UNK
     Route: 065
  18. BISOPROLOL [Concomitant]
     Active Substance: BISOPROLOL
     Indication: Product used for unknown indication
     Dosage: UNK
     Route: 065
  19. COVID-19 VACCINE [Concomitant]
     Indication: Product used for unknown indication
     Dosage: UNK
     Route: 065
     Dates: start: 20210414
  20. DOXAZOSIN [Concomitant]
     Active Substance: DOXAZOSIN\DOXAZOSIN MESYLATE
     Indication: Product used for unknown indication
     Dosage: UNK
     Route: 065
     Dates: start: 20201015
  21. FUROSEMIDE [Concomitant]
     Active Substance: FUROSEMIDE
     Indication: Product used for unknown indication
     Dosage: UNK
     Route: 065
  22. INVOKANA [Concomitant]
     Active Substance: CANAGLIFLOZIN
     Indication: Product used for unknown indication
     Dosage: UNK
     Route: 065
  23. PANTOPRAZOLE [Concomitant]
     Active Substance: PANTOPRAZOLE
     Indication: Product used for unknown indication
     Dosage: UNK
     Route: 065
     Dates: start: 20201015
  24. PREDNISONE [Concomitant]
     Active Substance: PREDNISONE
     Indication: Product used for unknown indication
     Dosage: UNK
     Route: 065
  25. RAMIPRIL [Concomitant]
     Active Substance: RAMIPRIL
     Indication: Product used for unknown indication
     Dosage: UNK
     Route: 065
  26. RISEDRONATE SODIUM [Concomitant]
     Active Substance: RISEDRONATE SODIUM
     Indication: Product used for unknown indication
     Dosage: UNK
     Route: 065
  27. ROSUVASTATIN [Concomitant]
     Active Substance: ROSUVASTATIN
     Indication: Product used for unknown indication
     Dosage: UNK
     Route: 065
  28. SEPTRA DS [Concomitant]
     Active Substance: SULFAMETHOXAZOLE\TRIMETHOPRIM
     Indication: Product used for unknown indication
     Dosage: UNK
     Route: 065
     Dates: start: 20201016
  29. TYLENOL [Concomitant]
     Active Substance: ACETAMINOPHEN
     Indication: Premedication
     Dosage: 650 MILLIGRAM
     Route: 048
     Dates: start: 20201105

REACTIONS (2)
  - Blindness transient [Unknown]
  - Hypoacusis [Unknown]
